FAERS Safety Report 5483305-5 (Version None)
Quarter: 2007Q4

REPORT INFORMATION
  Report Type: 
  Country: None (occurrence: None)
  Receive Date: 20071012
  Receipt Date: 20070928
  Transmission Date: 20080405
  Serious: Yes (Hospitalization, Other)
  Sender: FDA-Public Use
  Company Number: PHEH2006US10028

PATIENT
  Age: 26 Year
  Sex: Male
  Weight: 57.8 kg

DRUGS (4)
  1. *CGP 57148B* [Suspect]
     Indication: CHRONIC MYELOID LEUKAEMIA
     Dosage: 800 MG, QD
     Route: 048
     Dates: start: 20040619
  2. *CGP 57148B* [Suspect]
     Dosage: NO TREATMENT
  3. *CGP 57148B* [Suspect]
     Dosage: 500 MG, QD
     Route: 048
  4. *CGP 57148B* [Suspect]
     Dosage: 100 MG, QD
     Route: 048

REACTIONS (12)
  - ASCITES [None]
  - BLOOD CREATINE PHOSPHOKINASE INCREASED [None]
  - CALCIFICATION OF MUSCLE [None]
  - ERYTHEMA [None]
  - MUSCULAR WEAKNESS [None]
  - MUSCULOSKELETAL STIFFNESS [None]
  - MYALGIA [None]
  - OEDEMA PERIPHERAL [None]
  - PAIN IN EXTREMITY [None]
  - RHABDOMYOLYSIS [None]
  - SKIN INFLAMMATION [None]
  - SWELLING [None]
